FAERS Safety Report 9970764 (Version 1)
Quarter: 2014Q1

REPORT INFORMATION
  Report Type: Spontaneous
  Country: US (occurrence: None)
  Receive Date: 20140305
  Receipt Date: 20140305
  Transmission Date: 20141002
  Serious: Yes (Disabling)
  Sender: FDA-Public Use
  Company Number: None

PATIENT
  Age: 27 Year
  Sex: Male
  Weight: 77.11 kg

DRUGS (1)
  1. PROPECIA [Suspect]
     Dates: start: 20140302, end: 20140303

REACTIONS (4)
  - Quality of life decreased [None]
  - Male sexual dysfunction [None]
  - Depression [None]
  - Fatigue [None]
